FAERS Safety Report 7250112-2 (Version None)
Quarter: 2011Q1

REPORT INFORMATION
  Report Type: 
  Country: None (occurrence: None)
  Receive Date: 20110128
  Receipt Date: 20101220
  Transmission Date: 20110831
  Serious: Yes (Hospitalization)
  Sender: FDA-Public Use
  Company Number: US-BAYER-201013962NA

PATIENT
  Sex: Female
  Weight: 60 kg

DRUGS (6)
  1. FLOVENT [Concomitant]
  2. SINGULAIR [Concomitant]
  3. ALBUTEROL [Concomitant]
  4. YAZ [Suspect]
     Indication: CONTRACEPTION
     Route: 048
     Dates: start: 20060101, end: 20080101
  5. ADVAIR [Concomitant]
  6. IBUPROFEN [Concomitant]

REACTIONS (1)
  - CHOLECYSTECTOMY [None]
